FAERS Safety Report 17416644 (Version 2)
Quarter: 2020Q3

REPORT INFORMATION
  Report Type: Report from Study
  Country: US (occurrence: US)
  Receive Date: 20200214
  Receipt Date: 20200915
  Transmission Date: 20201102
  Serious: Yes (Hospitalization)
  Sender: FDA-Public Use
  Company Number: US-ROCHE-2548444

PATIENT
  Age: 56 Year
  Sex: Male
  Weight: 66 kg

DRUGS (2)
  1. OBINUTUZUMAB. [Suspect]
     Active Substance: OBINUTUZUMAB
     Indication: CHRONIC LYMPHOCYTIC LEUKAEMIA
     Dosage: 100 MG IV ON DAY 1, CYCLE 1; : 100 MG IV ON DAY 1, CYCLE 1 900 MG IV ON DAY 2, CYCLE 1; 1000 MG IV O
     Route: 042
     Dates: start: 20200127
  2. IBRUTINIB [Suspect]
     Active Substance: IBRUTINIB
     Indication: CHRONIC LYMPHOCYTIC LEUKAEMIA
     Dosage: 420 MG PO QD ON DAYS 1?28?ON 27/JAN/2020, HE RECEIVED RECENT DOSE OF IBRUTINIB.
     Route: 048
     Dates: start: 20200127

REACTIONS (3)
  - Large intestinal haemorrhage [Recovering/Resolving]
  - Lymphocyte count decreased [Recovering/Resolving]
  - Hypotension [Recovering/Resolving]

NARRATIVE: CASE EVENT DATE: 20200128
